FAERS Safety Report 4306125-3 (Version None)
Quarter: 2004Q1

REPORT INFORMATION
  Report Type: 
  Country: None (occurrence: None)
  Receive Date: 20040225
  Receipt Date: 20030226
  Transmission Date: 20041129
  Serious: No
  Sender: FDA-Public Use
  Company Number: US-BRISTOL-MYERS SQUIBB COMPANY-12196085

PATIENT
  Age: 19 Year
  Sex: Female
  Weight: 54 kg

DRUGS (1)
  1. EXCEDRIN (MIGRAINE) [Suspect]
     Indication: MIGRAINE
     Route: 048
     Dates: start: 20030225, end: 20030225

REACTIONS (5)
  - DRUG INEFFECTIVE [None]
  - HEART RATE DECREASED [None]
  - MUSCLE TWITCHING [None]
  - MYALGIA [None]
  - PAIN [None]
